FAERS Safety Report 4524904-4 (Version None)
Quarter: 2004Q4

REPORT INFORMATION
  Report Type: 
  Country: None (occurrence: None)
  Receive Date: 20041117
  Receipt Date: 20030512
  Transmission Date: 20050328
  Serious: Yes (Other)
  Sender: FDA-Public Use
  Company Number: C2003-0117.01

PATIENT
  Age: 51 Year
  Sex: Male

DRUGS (6)
  1. CLOZAPINE [Suspect]
     Indication: AGGRESSION
     Dosage: SEE IMAGE
     Route: 048
     Dates: start: 20030416
  2. CLOZAPINE [Suspect]
     Indication: POLYDIPSIA PSYCHOGENIC
     Dosage: SEE IMAGE
     Route: 048
     Dates: start: 20030416
  3. CLOZAPINE [Suspect]
     Indication: PSYCHOTIC DISORDER
     Dosage: SEE IMAGE
     Route: 048
     Dates: start: 20030416
  4. DIPHENHYDRAMINE [Concomitant]
  5. DOCUSATE SODIUM [Concomitant]
  6. HYDROXYZINE PAMOATE [Concomitant]

REACTIONS (1)
  - WHITE BLOOD CELL COUNT DECREASED [None]
